FAERS Safety Report 9400232 (Version 2)
Quarter: 2014Q2

REPORT INFORMATION
  Report Type: Spontaneous
  Country: US (occurrence: US)
  Receive Date: 20130715
  Receipt Date: 20140407
  Transmission Date: 20141212
  Serious: Yes (Hospitalization)
  Sender: FDA-Public Use
  Company Number: US-SANOFI-AVENTIS-2013SA070098

PATIENT
  Age: 55 Year
  Sex: Female

DRUGS (4)
  1. LOVENOX [Suspect]
     Indication: KNEE OPERATION
     Dosage: PRODUCT STOP DATE: 1 WEEK AGO.
     Route: 065
     Dates: start: 20130615, end: 20130704
  2. LOVENOX [Suspect]
     Indication: WRIST SURGERY
     Dosage: PRODUCT STOP DATE: 1 WEEK AGO.
     Route: 065
     Dates: start: 20130615, end: 20130704
  3. LOVENOX [Suspect]
     Indication: THROMBOSIS PROPHYLAXIS
     Dosage: PRODUCT STOP DATE: 1 WEEK AGO.
     Route: 065
     Dates: start: 20130615, end: 20130704
  4. ACETAMINOPHEN [Concomitant]
     Indication: PAIN

REACTIONS (3)
  - Lung infection [Unknown]
  - Mobility decreased [Unknown]
  - Contusion [Recovered/Resolved]
